FAERS Safety Report 24770275 (Version 1)
Quarter: 2024Q4

REPORT INFORMATION
  Report Type: Spontaneous
  Country: CA (occurrence: CA)
  Receive Date: 20241224
  Receipt Date: 20241224
  Transmission Date: 20250114
  Serious: Yes (Death)
  Sender: ROCHE
  Company Number: CA-ROCHE-10000163772

PATIENT
  Age: 89 Year
  Sex: Female

DRUGS (3)
  1. TNKASE [Suspect]
     Active Substance: TENECTEPLASE
     Indication: Ischaemic stroke
     Route: 065
  2. HYDRALAZINE HYDROCHLORIDE INJECTION, USP SINGLE USE VIAL [Concomitant]
     Route: 042
  3. LABETALOL [Concomitant]
     Active Substance: LABETALOL

REACTIONS (2)
  - Blood pressure abnormal [Fatal]
  - Haemorrhage intracranial [Fatal]
